FAERS Safety Report 4599652-5 (Version None)
Quarter: 2005Q1

REPORT INFORMATION
  Report Type: 
  Country: None (occurrence: None)
  Receive Date: 20050303
  Receipt Date: 20050218
  Transmission Date: 20050727
  Serious: Yes (Hospitalization, Other)
  Sender: FDA-Public Use
  Company Number: 16870

PATIENT
  Age: 62 Year
  Sex: Female
  Weight: 99.3377 kg

DRUGS (1)
  1. DAUNORUBICIN HCL [Suspect]
     Indication: ACUTE MYELOID LEUKAEMIA
     Dosage: 45 MG/M2 OTHER
     Route: 050
     Dates: start: 20040924

REACTIONS (3)
  - CATHETER RELATED INFECTION [None]
  - FEBRILE NEUTROPENIA [None]
  - NEUTROPHIL COUNT DECREASED [None]
